FAERS Safety Report 7681350-2 (Version None)
Quarter: 2011Q3

REPORT INFORMATION
  Report Type: 
  Country: None (occurrence: None)
  Receive Date: 20110812
  Receipt Date: 20110804
  Transmission Date: 20111222
  Serious: Yes (Hospitalization)
  Sender: FDA-Public Use
  Company Number: NL-JNJFOC-20110801230

PATIENT
  Sex: Male
  Weight: 115 kg

DRUGS (4)
  1. STELARA [Suspect]
     Route: 058
     Dates: start: 20100101
  2. DIOVAN [Concomitant]
     Dates: start: 20110324
  3. RASILEZ [Concomitant]
     Dates: start: 20110324
  4. STELARA [Suspect]
     Indication: PSORIASIS
     Route: 058
     Dates: start: 20110519

REACTIONS (1)
  - MYOCARDIAL INFARCTION [None]
